FAERS Safety Report 6250417-8 (Version None)
Quarter: 2009Q2

REPORT INFORMATION
  Report Type: 
  Country: None (occurrence: None)
  Receive Date: 20090630
  Receipt Date: 20090624
  Transmission Date: 20091009
  Serious: Yes (Hospitalization)
  Sender: FDA-Public Use
  Company Number: FR-BRISTOL-MYERS SQUIBB COMPANY-14681209

PATIENT
  Age: 92 Year
  Sex: Female

DRUGS (12)
  1. COUMADIN [Suspect]
     Indication: PROPHYLAXIS
     Dosage: ALTERNATING WITH 1MG/D
     Route: 048
  2. COTAREG [Suspect]
     Indication: ESSENTIAL HYPERTENSION
     Route: 048
     Dates: end: 20090202
  3. LASILIX FAIBLE [Suspect]
     Indication: ESSENTIAL HYPERTENSION
     Route: 048
     Dates: end: 20090202
  4. ALDACTONE [Suspect]
     Indication: ESSENTIAL HYPERTENSION
     Route: 048
     Dates: end: 20090202
  5. HEMIGOXINE NATIVELLE [Suspect]
     Indication: ARRHYTHMIA
     Route: 048
     Dates: end: 20090202
  6. CORDARONE [Suspect]
     Indication: ARRHYTHMIA
     Route: 048
     Dates: end: 20090202
  7. ADANCOR [Suspect]
     Indication: ANGINA PECTORIS
     Route: 048
     Dates: end: 20090202
  8. DISCOTRINE [Suspect]
     Indication: PROPHYLAXIS
     Dosage: TRANSDERMAL PATCH
     Route: 062
     Dates: end: 20090202
  9. SINGULAIR [Concomitant]
  10. NEXIUM [Concomitant]
  11. TEMESTA [Concomitant]
  12. SERETIDE [Concomitant]

REACTIONS (5)
  - FALL [None]
  - HAEMATOMA [None]
  - MALAISE [None]
  - OVERDOSE [None]
  - RENAL FAILURE ACUTE [None]
